FAERS Safety Report 24631364 (Version 1)
Quarter: 2024Q4

REPORT INFORMATION
  Report Type: Spontaneous
  Country: US (occurrence: None)
  Receive Date: 20241118
  Receipt Date: 20241118
  Transmission Date: 20250115
  Serious: Yes (Other)
  Sender: Public
  Company Number: None

PATIENT
  Age: 55 Year
  Sex: Female

DRUGS (5)
  1. SUBOXONE [Suspect]
     Active Substance: BUPRENORPHINE HYDROCHLORIDE\NALOXONE HYDROCHLORIDE
     Indication: Drug use disorder
     Dosage: FREQUENCY : TWICE A DAY;?
     Route: 060
     Dates: start: 20051101, end: 20241107
  2. FOLIC ACID [Concomitant]
     Active Substance: FOLIC ACID
  3. FAMOTIDINE [Concomitant]
     Active Substance: FAMOTIDINE
  4. ESTRADIOL [Concomitant]
     Active Substance: ESTRADIOL
  5. HYDROXYZINE HYDROCHLORIDE [Concomitant]
     Active Substance: HYDROXYZINE HYDROCHLORIDE

REACTIONS (1)
  - Oedema [None]

NARRATIVE: CASE EVENT DATE: 20241107
